FAERS Safety Report 9132864 (Version 2)
Quarter: 2013Q3

REPORT INFORMATION
  Report Type: Spontaneous
  Country: US (occurrence: US)
  Receive Date: 20130107
  Receipt Date: 20130815
  Transmission Date: 20140515
  Serious: Yes (Congenital Anomaly)
  Sender: FDA-Public Use
  Company Number: US-UCBSA-074349

PATIENT
  Age: 0 Day
  Sex: 0

DRUGS (2)
  1. KEPPRA [Suspect]
     Indication: EPILEPSY
     Route: 064
  2. KEPPRA [Suspect]
     Indication: EPILEPSY
     Route: 064

REACTIONS (3)
  - Congenital musculoskeletal anomaly [Unknown]
  - Overdose [Recovered/Resolved]
  - Foetal exposure during pregnancy [Recovered/Resolved]
